FAERS Safety Report 7461510-6 (Version None)
Quarter: 2011Q2

REPORT INFORMATION
  Report Type: 
  Country: None (occurrence: None)
  Receive Date: 20110506
  Receipt Date: 20110504
  Transmission Date: 20111010
  Serious: No
  Sender: FDA-Public Use
  Company Number: US-PFIZER INC-2011067375

PATIENT
  Sex: Female
  Weight: 77.098 kg

DRUGS (8)
  1. PRISTIQ [Suspect]
     Indication: DEPRESSION
     Dosage: 50 MG, 1X/DAY
     Route: 048
     Dates: start: 20110301
  2. CELEBREX [Suspect]
     Indication: ARTHRITIS
     Dosage: 200 MG, 1X/DAY
     Route: 048
  3. LISINOPRIL [Suspect]
     Indication: HYPERTENSION
     Dosage: 10 MG, 1X/DAY
  4. NEXIUM [Suspect]
     Indication: GASTRIC DISORDER
     Dosage: 40 MG, 2X/DAY
  5. LACTULOSE [Suspect]
     Indication: CONSTIPATION
     Dosage: 2 TBSP. DAILY
  6. NITROFURANTOIN [Suspect]
     Indication: CYSTITIS
     Dosage: 50 MG, 1X/DAY
  7. SPIRIVA [Suspect]
     Indication: CHRONIC OBSTRUCTIVE PULMONARY DISEASE
     Dosage: UNK
     Route: 055
  8. FENTANYL [Suspect]
     Indication: BACK PAIN
     Dosage: UNK
     Route: 062

REACTIONS (2)
  - DRUG INTERACTION [None]
  - RASH GENERALISED [None]
